FAERS Safety Report 4647748-1 (Version None)
Quarter: 2005Q2

REPORT INFORMATION
  Report Type: 
  Country: None (occurrence: None)
  Receive Date: 20050426
  Receipt Date: 20050413
  Transmission Date: 20051028
  Serious: Yes (Other)
  Sender: FDA-Public Use
  Company Number: 2005059031

PATIENT
  Sex: Female

DRUGS (1)
  1. BEXTRA [Suspect]
     Indication: DENTAL TREATMENT
     Dosage: 40 MG ORAL
     Route: 048

REACTIONS (2)
  - DIARRHOEA [None]
  - SKIN REACTION [None]
